FAERS Safety Report 11236123 (Version 1)
Quarter: 2015Q3

REPORT INFORMATION
  Report Type: Spontaneous
  Country: IT (occurrence: IT)
  Receive Date: 20150702
  Receipt Date: 20150702
  Transmission Date: 20151125
  Serious: Yes (Hospitalization)
  Sender: FDA-Public Use
  Company Number: IT-FRI-1000077956

PATIENT
  Age: 80 Year
  Sex: Female

DRUGS (7)
  1. LORTAAN [Concomitant]
     Active Substance: LOSARTAN POTASSIUM
  2. LASIX [Concomitant]
     Active Substance: FUROSEMIDE
  3. CORDARONE [Concomitant]
     Active Substance: AMIODARONE HYDROCHLORIDE
  4. CATAPRESAN [Concomitant]
     Active Substance: CLONIDINE
  5. COUMADIN [Concomitant]
     Active Substance: WARFARIN SODIUM
  6. NEBIVOLOL. [Suspect]
     Active Substance: NEBIVOLOL
     Indication: HYPERTENSIVE HEART DISEASE
     Route: 048
     Dates: start: 20150401
  7. LEXOTAN [Concomitant]
     Active Substance: BROMAZEPAM

REACTIONS (1)
  - Toxicity to various agents [Recovering/Resolving]

NARRATIVE: CASE EVENT DATE: 20150602
